FAERS Safety Report 18683637 (Version 5)
Quarter: 2021Q1

REPORT INFORMATION
  Report Type: Spontaneous
  Country: US (occurrence: US)
  Receive Date: 20201230
  Receipt Date: 20210322
  Transmission Date: 20210419
  Serious: Yes (Hospitalization, Other)
  Sender: FDA-Public Use
  Company Number: US-ALXN-A202019241

PATIENT
  Age: 78 Year
  Sex: Female

DRUGS (2)
  1. SOLIRIS [Suspect]
     Active Substance: ECULIZUMAB
     Dosage: UNK
     Route: 042
     Dates: start: 20181001, end: 202012
  2. SOLIRIS [Suspect]
     Active Substance: ECULIZUMAB
     Indication: MYASTHENIA GRAVIS
     Dosage: UNK
     Route: 042
     Dates: start: 201701, end: 2020

REACTIONS (9)
  - Dyspnoea [Recovering/Resolving]
  - Spinal cord injury [Recovering/Resolving]
  - Sepsis [Recovering/Resolving]
  - Fatigue [Recovering/Resolving]
  - Spinal cord abscess [Recovering/Resolving]
  - Osteomyelitis [Recovering/Resolving]
  - Back pain [Recovering/Resolving]
  - Spinal cord infection [Recovering/Resolving]
  - Anaemia [Not Recovered/Not Resolved]
